FAERS Safety Report 9190240 (Version 1)
Quarter: 2013Q1

REPORT INFORMATION
  Report Type: Spontaneous
  Country: US (occurrence: None)
  Receive Date: 20130325
  Receipt Date: 20130325
  Transmission Date: 20140127
  Serious: Yes (Other)
  Sender: FDA-Public Use
  Company Number: None

PATIENT
  Age: 59 Year
  Sex: 0
  Weight: 60 kg

DRUGS (2)
  1. SUSTIVA [Suspect]
     Dosage: 1 PILL ONCE DAILY
     Dates: start: 201207
  2. COMBIVIR [Suspect]
     Dosage: 1 PILL TWICE A DAY

REACTIONS (2)
  - Rash [None]
  - Product substitution issue [None]
